FAERS Safety Report 9419776 (Version 1)
Quarter: 2013Q3

REPORT INFORMATION
  Report Type: Spontaneous
  Country: GB (occurrence: GB)
  Receive Date: 20130725
  Receipt Date: 20130725
  Transmission Date: 20140515
  Serious: Yes (Other)
  Sender: FDA-Public Use
  Company Number: GB-PFIZER INC-2013214186

PATIENT
  Age: 32 Year
  Sex: Male
  Weight: 69.85 kg

DRUGS (1)
  1. CHAMPIX [Suspect]
     Dosage: UNK
     Dates: start: 2011

REACTIONS (4)
  - Anger [Unknown]
  - Emotional disorder [Unknown]
  - Anxiety [Unknown]
  - Affect lability [Unknown]
